FAERS Safety Report 13086207 (Version 1)
Quarter: 2017Q1

REPORT INFORMATION
  Report Type: Spontaneous
  Country: US (occurrence: US)
  Receive Date: 20170104
  Receipt Date: 20170104
  Transmission Date: 20170428
  Serious: No
  Sender: FDA-Public Use
  Company Number: US-PERRIGO-16US019769

PATIENT
  Age: 56 Year
  Sex: Male
  Weight: 101.59 kg

DRUGS (2)
  1. CLEMASTINE FUMARATE. [Suspect]
     Active Substance: CLEMASTINE FUMARATE
     Indication: PRODUCTIVE COUGH
     Dosage: 1.34 MG, SINGLE
     Route: 048
     Dates: start: 20160902, end: 20160902
  2. CLEMASTINE FUMARATE. [Suspect]
     Active Substance: CLEMASTINE FUMARATE
     Indication: UPPER-AIRWAY COUGH SYNDROME

REACTIONS (1)
  - Drug ineffective for unapproved indication [Unknown]

NARRATIVE: CASE EVENT DATE: 20160902
